FAERS Safety Report 7083640-3 (Version None)
Quarter: 2010Q4

REPORT INFORMATION
  Report Type: 
  Country: None (occurrence: None)
  Receive Date: 20101103
  Receipt Date: 20101103
  Transmission Date: 20110411
  Serious: Yes (Other)
  Sender: FDA-Public Use
  Company Number: None

PATIENT
  Age: 29 Year
  Sex: Female
  Weight: 80.2867 kg

DRUGS (1)
  1. OCELLA 3 MG/0.03 MG BARR LABORATORIES, INC. [Suspect]
     Indication: MENSTRUATION IRREGULAR
     Dosage: 1 PILL 1X A DAY PO
     Route: 048
     Dates: start: 20100811, end: 20101102

REACTIONS (8)
  - ASTHENIA [None]
  - DECREASED APPETITE [None]
  - EYE PAIN [None]
  - HEADACHE [None]
  - HYPOAESTHESIA [None]
  - MOOD ALTERED [None]
  - NAUSEA [None]
  - SLEEP DISORDER [None]
